FAERS Safety Report 5634202-3 (Version None)
Quarter: 2008Q1

REPORT INFORMATION
  Report Type: 
  Country: None (occurrence: None)
  Receive Date: 20080219
  Receipt Date: 20080201
  Transmission Date: 20080703
  Serious: Yes (Hospitalization)
  Sender: FDA-Public Use
  Company Number: 8029753

PATIENT
  Sex: Male

DRUGS (1)
  1. METHYLPHENIDATE HCL [Suspect]
     Dates: start: 20071204

REACTIONS (4)
  - ANTINUCLEAR ANTIBODY POSITIVE [None]
  - EYE INFLAMMATION [None]
  - IRIDOCYCLITIS [None]
  - NO THERAPEUTIC RESPONSE [None]
